FAERS Safety Report 7547350-8 (Version None)
Quarter: 2011Q2

REPORT INFORMATION
  Report Type: 
  Country: None (occurrence: None)
  Receive Date: 20110614
  Receipt Date: 20110607
  Transmission Date: 20111010
  Serious: Yes (Hospitalization)
  Sender: FDA-Public Use
  Company Number: AT-CEPHALON-2011002877

PATIENT
  Sex: Female
  Weight: 58 kg

DRUGS (2)
  1. BENDAMUSTINE HCL [Suspect]
     Route: 042
     Dates: start: 20110530, end: 20110531
  2. RITUXIMAB [Suspect]
     Route: 042
     Dates: start: 20110530, end: 20110530

REACTIONS (1)
  - HYPERSENSITIVITY [None]
